FAERS Safety Report 10686367 (Version 3)
Quarter: 2015Q1

REPORT INFORMATION
  Report Type: Spontaneous
  Country: US (occurrence: US)
  Receive Date: 20141231
  Receipt Date: 20150114
  Transmission Date: 20150720
  Serious: Yes (Hospitalization)
  Sender: FDA-Public Use
  Company Number: US-ACTELION-A-US2014-109777

PATIENT
  Age: 47 Year
  Sex: Female

DRUGS (7)
  1. LASIX [Concomitant]
     Active Substance: FUROSEMIDE
  2. VELETRI [Suspect]
     Active Substance: EPOPROSTENOL
     Indication: PULMONARY ARTERIAL HYPERTENSION
     Dosage: 47 NG/KG, PER MIN
     Route: 042
     Dates: start: 20140805
  3. ADCIRCA [Concomitant]
     Active Substance: TADALAFIL
  4. PREDNISONE. [Concomitant]
     Active Substance: PREDNISONE
  5. PEPCID [Concomitant]
     Active Substance: FAMOTIDINE
  6. COUMADIN [Concomitant]
     Active Substance: WARFARIN SODIUM
  7. BACTRIM [Concomitant]
     Active Substance: SULFAMETHOXAZOLE\TRIMETHOPRIM

REACTIONS (9)
  - Drug dose omission [Recovered/Resolved]
  - Catheter site pain [Unknown]
  - Fatigue [Recovered/Resolved]
  - Asthenia [Recovered/Resolved]
  - Dizziness [Recovered/Resolved]
  - Device connection issue [Recovered/Resolved]
  - Catheter site inflammation [Unknown]
  - Dyspnoea [Recovered/Resolved]
  - Nausea [Recovered/Resolved]

NARRATIVE: CASE EVENT DATE: 20141209
